FAERS Safety Report 19206515 (Version 8)
Quarter: 2021Q3

REPORT INFORMATION
  Report Type: Report from Study
  Country: US (occurrence: US)
  Receive Date: 20210503
  Receipt Date: 20210914
  Transmission Date: 20211014
  Serious: No
  Sender: FDA-Public Use
  Company Number: NVSC2021US099360

PATIENT
  Age: 59 Year
  Sex: Male

DRUGS (5)
  1. ENTRESTO [Suspect]
     Active Substance: SACUBITRIL\VALSARTAN
     Dosage: UNK
     Route: 065
  2. ENTRESTO [Suspect]
     Active Substance: SACUBITRIL\VALSARTAN
     Dosage: 0.5 DF, BID, 24/26 MG (1/2 AT MORNING AND 1 AT NIGHT)
     Route: 048
     Dates: start: 20210806
  3. ENTRESTO [Suspect]
     Active Substance: SACUBITRIL\VALSARTAN
     Dosage: 0.5 DF, BID (24/26 MG)
     Route: 048
  4. ENTRESTO [Suspect]
     Active Substance: SACUBITRIL\VALSARTAN
     Indication: CARDIAC FAILURE CONGESTIVE
     Dosage: 50 MG, BID (24/26 1/2 TABLET IN AM AND 1 TABLET)
     Route: 048
     Dates: start: 20210421
  5. ENTRESTO [Suspect]
     Active Substance: SACUBITRIL\VALSARTAN
     Dosage: 0.5 DF, BID, 24/26 MG (1/2 AT MORNING AND 1 AT NIGHT)
     Route: 048
     Dates: start: 20210506

REACTIONS (8)
  - Wrong technique in product usage process [Not Recovered/Not Resolved]
  - Hypotension [Not Recovered/Not Resolved]
  - Incorrect dose administered [Unknown]
  - Weight fluctuation [Not Recovered/Not Resolved]
  - Glycosylated haemoglobin decreased [Recovering/Resolving]
  - Throat clearing [Unknown]
  - Dizziness [Not Recovered/Not Resolved]
  - Weight decreased [Recovering/Resolving]

NARRATIVE: CASE EVENT DATE: 202104
